FAERS Safety Report 4853529-6 (Version None)
Quarter: 2005Q4

REPORT INFORMATION
  Report Type: 
  Country: None (occurrence: None)
  Receive Date: 20051214
  Receipt Date: 20050928
  Transmission Date: 20060501
  Serious: Yes (Death, Hospitalization)
  Sender: FDA-Public Use
  Company Number: CH-JNJFOC-20050901948

PATIENT
  Sex: Male
  Weight: 66 kg

DRUGS (4)
  1. CAELYX [Suspect]
     Indication: MYCOSIS FUNGOIDES
     Route: 042
  2. CETIRIZINE HCL [Concomitant]
  3. EFFEXOR [Concomitant]
  4. VALIUM [Concomitant]

REACTIONS (3)
  - BACK PAIN [None]
  - FALL [None]
  - INFECTION [None]
